FAERS Safety Report 9526862 (Version 2)
Quarter: 2014Q1

REPORT INFORMATION
  Report Type: Report from Study
  Country: NL (occurrence: NL)
  Receive Date: 20130916
  Receipt Date: 20140228
  Transmission Date: 20141002
  Serious: Yes (Other)
  Sender: FDA-Public Use
  Company Number: PHHY2013NL101819

PATIENT
  Sex: Female

DRUGS (4)
  1. ZOMETA [Suspect]
     Indication: METASTASES TO BONE
     Dosage: 04 MG PER 100ML, ONCE IN 04 WEEKS
     Route: 042
  2. ZOMETA [Suspect]
     Dosage: 04 MG PER 100ML, ONCE IN 04 WEEKS
     Route: 042
     Dates: start: 20130416
  3. ZOMETA [Suspect]
     Dosage: 04 MG PER 100ML, ONCE IN 04 WEEKS
     Route: 042
     Dates: start: 20130807
  4. ZOMETA [Suspect]
     Dosage: 04 MG PER 100ML, ONCE IN 04 WEEKS
     Route: 042
     Dates: start: 20130902

REACTIONS (3)
  - Breast cancer metastatic [Unknown]
  - Malignant neoplasm progression [Unknown]
  - Terminal state [Unknown]
